FAERS Safety Report 5944134-9 (Version None)
Quarter: 2008Q4

REPORT INFORMATION
  Report Type: 
  Country: None (occurrence: None)
  Receive Date: 20081104
  Receipt Date: 20081024
  Transmission Date: 20090506
  Serious: Yes (Hospitalization)
  Sender: FDA-Public Use
  Company Number: 2008BI028827

PATIENT
  Sex: Male
  Weight: 65.7716 kg

DRUGS (3)
  1. TYSABRI [Suspect]
     Indication: CROHN'S DISEASE
     Dosage: 300 MG;QM;IV
     Route: 042
     Dates: start: 20080613
  2. OXYCONTIN [Concomitant]
  3. PREV MEDS [Concomitant]

REACTIONS (4)
  - CELLULITIS [None]
  - CHILLS [None]
  - DRUG DOSE OMISSION [None]
  - THROMBOSIS IN DEVICE [None]
